FAERS Safety Report 5962934-6 (Version None)
Quarter: 2008Q4

REPORT INFORMATION
  Report Type: 
  Country: None (occurrence: None)
  Receive Date: 20081124
  Receipt Date: 20081110
  Transmission Date: 20090506
  Serious: Yes (Other)
  Sender: FDA-Public Use
  Company Number: US-TYCO HEALTHCARE/MALLINCKRODT-T200801494

PATIENT

DRUGS (27)
  1. OPTIMARK [Suspect]
     Indication: NUCLEAR MAGNETIC RESONANCE IMAGING
     Dosage: UNK, SINGLE
     Dates: start: 20040210, end: 20040210
  2. OPTIMARK [Suspect]
     Dates: start: 20040216, end: 20040216
  3. OPTIMARK [Suspect]
     Dosage: UNK
     Dates: start: 20040804, end: 20040804
  4. OPTIMARK [Suspect]
     Dosage: UNK, SINGLE
     Dates: start: 20040808, end: 20040808
  5. OPTIMARK [Suspect]
     Dates: start: 20041028, end: 20041028
  6. MAGNEVIST [Suspect]
     Indication: NUCLEAR MAGNETIC RESONANCE IMAGING
     Dosage: UNK, SINGLE
     Dates: start: 20050224, end: 20050224
  7. MAGNEVIST [Suspect]
     Dates: start: 20050224, end: 20050224
  8. MAGNEVIST [Suspect]
     Dosage: UNK, SINGLE
     Dates: start: 20050908, end: 20050908
  9. MAGNEVIST [Suspect]
     Dates: start: 20050908, end: 20050908
  10. MAGNEVIST [Suspect]
     Dates: start: 20051110, end: 20051110
  11. MAGNEVIST [Suspect]
     Dates: start: 20060523, end: 20060523
  12. MAGNEVIST [Suspect]
     Dates: start: 20060923, end: 20060923
  13. AMBIEN CR [Concomitant]
     Indication: SLEEP DISORDER
     Dosage: 12.5 MG, QD
  14. AMITRIPTYLINE HCL [Concomitant]
     Indication: ANTIDEPRESSANT THERAPY
     Dosage: 25 MG, QD
  15. FLUCONAZOLE [Concomitant]
     Indication: ANTIFUNGAL TREATMENT
     Dosage: 200 MG, QD
     Dates: start: 20030101
  16. HYDROCODONE BITARTRATE AND ACETAMINOPHEN [Concomitant]
     Indication: PAIN
     Dosage: UNK, PRN
     Dates: start: 20030101
  17. LANOXIN [Concomitant]
     Indication: PALPITATIONS
     Dosage: 125 MG, QOD
  18. NORVASC [Concomitant]
     Indication: HYPERTENSION
     Dosage: 5/500 TWICE DAILY
     Dates: start: 19970101
  19. PROGRAF [Concomitant]
     Indication: PROPHYLAXIS AGAINST TRANSPLANT REJECTION
     Dates: start: 19960101
  20. RENAGEL                            /01459901/ [Concomitant]
     Indication: MINERAL SUPPLEMENTATION
     Dosage: 800 MG, TID
  21. WARFARIN SODIUM [Concomitant]
     Indication: COAGULOPATHY
     Dosage: 1 MG, QD
     Dates: start: 20070101
  22. SODIUM THIOSULFATE [Concomitant]
     Indication: DRUG THERAPY
     Dates: start: 20080101
  23. EPOGEN [Concomitant]
     Indication: HORMONE THERAPY
     Dates: start: 20030101
  24. IRON [Concomitant]
     Dates: start: 20030101
  25. OTHER VITAMIN PRODUCTS, COMBINATIONS [Concomitant]
     Dates: start: 20030101
  26. INSULIN [Concomitant]
     Indication: DIABETES MELLITUS
     Dosage: UNK, UNK
     Dates: start: 19960101
  27. PREDNISONE TAB [Concomitant]
     Indication: DRUG THERAPY
     Dates: start: 19960101

REACTIONS (11)
  - ANHEDONIA [None]
  - ANXIETY [None]
  - BASAL CELL CARCINOMA [None]
  - COCCIDIOIDOMYCOSIS [None]
  - DECREASED ACTIVITY [None]
  - EMOTIONAL DISTRESS [None]
  - NEPHROGENIC SYSTEMIC FIBROSIS [None]
  - OSTEONECROSIS [None]
  - PAIN [None]
  - SCAR [None]
  - SQUAMOUS CELL CARCINOMA [None]
